FAERS Safety Report 17086306 (Version 1)
Quarter: 2019Q4

REPORT INFORMATION
  Report Type: Spontaneous
  Country: US (occurrence: US)
  Receive Date: 20191128
  Receipt Date: 20191128
  Transmission Date: 20200122
  Serious: No
  Sender: FDA-Public Use
  Company Number: US-UCBSA-2018042169

PATIENT
  Age: 69 Year
  Sex: Male
  Weight: 79 kg

DRUGS (3)
  1. NEUPRO [Suspect]
     Active Substance: ROTIGOTINE
     Indication: PERIODIC LIMB MOVEMENT DISORDER
  2. ZOLAZEPAM [Concomitant]
     Indication: SLEEP DISORDER
     Dosage: UNK
     Dates: start: 20180702
  3. NEUPRO [Suspect]
     Active Substance: ROTIGOTINE
     Indication: RESTLESS LEGS SYNDROME
     Dosage: 4 MG, ONCE DAILY (QD)
     Dates: start: 20180626

REACTIONS (5)
  - Syncope [Recovered/Resolved]
  - Pallor [Recovered/Resolved]
  - Dizziness [Recovered/Resolved]
  - Nausea [Recovered/Resolved]
  - Wrong technique in product usage process [Unknown]

NARRATIVE: CASE EVENT DATE: 201808
